FAERS Safety Report 18851404 (Version 1)
Quarter: 2021Q1

REPORT INFORMATION
  Report Type: Spontaneous
  Country: FR (occurrence: FR)
  Receive Date: 20210205
  Receipt Date: 20210205
  Transmission Date: 20210420
  Serious: Yes (Hospitalization)
  Sender: FDA-Public Use
  Company Number: FR-ASTRAZENECA-2021A027207

PATIENT
  Age: 53 Year
  Sex: Female

DRUGS (7)
  1. IMFINZI [Suspect]
     Active Substance: DURVALUMAB
     Indication: BREAST CANCER
     Dosage: 230.0MG UNKNOWN
     Route: 042
     Dates: start: 20201110
  2. CARBOPLATINE [Suspect]
     Active Substance: CARBOPLATIN
     Indication: BREAST CANCER
     Route: 042
     Dates: start: 20201110
  3. PACLITAXEL. [Suspect]
     Active Substance: PACLITAXEL
     Indication: BREAST CANCER
     Dosage: 230.0MG UNKNOWN
     Route: 042
     Dates: start: 20201110
  4. PACLITAXEL. [Suspect]
     Active Substance: PACLITAXEL
     Indication: BREAST CANCER
     Dosage: 230.0MG UNKNOWN
     Route: 042
     Dates: start: 20201110
  5. IMFINZI [Suspect]
     Active Substance: DURVALUMAB
     Indication: BREAST CANCER
     Dosage: 230.0MG UNKNOWN
     Route: 042
     Dates: start: 20201110
  6. IMFINZI [Suspect]
     Active Substance: DURVALUMAB
     Indication: BREAST CANCER
     Dosage: 1500.0MG UNKNOWN
     Route: 042
     Dates: start: 20201110, end: 20201208
  7. PACLITAXEL. [Suspect]
     Active Substance: PACLITAXEL
     Indication: BREAST CANCER
     Dosage: 159.0MG UNKNOWN
     Route: 042
     Dates: start: 20201110

REACTIONS (2)
  - Hepatocellular injury [Recovering/Resolving]
  - Cholestasis [Recovering/Resolving]

NARRATIVE: CASE EVENT DATE: 20201229
